FAERS Safety Report 7449770-9 (Version None)
Quarter: 2011Q2

REPORT INFORMATION
  Report Type: 
  Country: None (occurrence: None)
  Receive Date: 20110421
  Receipt Date: 20110411
  Transmission Date: 20111010
  Serious: Yes (Hospitalization, Other)
  Sender: FDA-Public Use
  Company Number: TPA2011A01358

PATIENT
  Age: 69 Year
  Sex: Male
  Weight: 131.5431 kg

DRUGS (6)
  1. PAXIL [Concomitant]
  2. ALTACE [Concomitant]
  3. FLOMAX [Concomitant]
  4. GLYBURIDE/METFORMIN (METFORMIN, GLIBENCLAMIDE) [Concomitant]
  5. ACTOS [Suspect]
     Indication: DIABETES MELLITUS
     Dosage: 30 MG, 1 IN 1 D, PER ORAL
     Route: 048
     Dates: start: 20080101, end: 20110301
  6. LIPITOR [Concomitant]

REACTIONS (2)
  - URETHRAL CANCER [None]
  - BLADDER TRANSITIONAL CELL CARCINOMA [None]
